FAERS Safety Report 21077390 (Version 1)
Quarter: 2022Q3

REPORT INFORMATION
  Report Type: Report from Study
  Country: RU (occurrence: RU)
  Receive Date: 20220713
  Receipt Date: 20220713
  Transmission Date: 20221027
  Serious: Yes (Hospitalization)
  Sender: FDA-Public Use
  Company Number: RU-TAKEDA-2022TUS046411

PATIENT
  Age: 9 Year
  Sex: Male
  Weight: 27 kg

DRUGS (3)
  1. ADVATE [Suspect]
     Active Substance: ANTIHEMOPHILIC FACTOR, HUMAN RECOMBINANT
     Indication: Haemostasis
     Dosage: 37 INTERNATIONAL UNIT/KILOGRAM
     Route: 042
     Dates: start: 20150128
  2. ADVATE [Suspect]
     Active Substance: ANTIHEMOPHILIC FACTOR, HUMAN RECOMBINANT
     Indication: Haemostasis
     Dosage: 37 INTERNATIONAL UNIT/KILOGRAM
     Route: 042
     Dates: start: 20150128
  3. ADVATE [Suspect]
     Active Substance: ANTIHEMOPHILIC FACTOR, HUMAN RECOMBINANT
     Indication: Haemostasis
     Dosage: 37 INTERNATIONAL UNIT/KILOGRAM
     Route: 042
     Dates: start: 20150128

REACTIONS (1)
  - Periodontitis [Recovered/Resolved]

NARRATIVE: CASE EVENT DATE: 20220630
